FAERS Safety Report 4691635-X (Version None)
Quarter: 2005Q2

REPORT INFORMATION
  Report Type: 
  Country: None (occurrence: None)
  Receive Date: 20050616
  Receipt Date: 20050606
  Transmission Date: 20051028
  Serious: Yes (Other)
  Sender: FDA-Public Use
  Company Number: US-JNJFOC-20050506521

PATIENT
  Sex: Male
  Weight: 68.04 kg

DRUGS (6)
  1. REMICADE [Suspect]
     Indication: POLYMYOSITIS
     Route: 042
  2. REMICADE [Suspect]
     Indication: RHEUMATOID ARTHRITIS
     Dosage: 7 DOSES
     Route: 042
  3. MTX [Concomitant]
  4. FOLIC ACID [Concomitant]
  5. PREDNISONE TAB [Concomitant]
     Dosage: IN AM
  6. FOSAMAX [Concomitant]

REACTIONS (2)
  - KNEE ARTHROPLASTY [None]
  - MYCOBACTERIUM AVIUM COMPLEX INFECTION [None]
